FAERS Safety Report 6725603-0 (Version None)
Quarter: 2010Q2

REPORT INFORMATION
  Report Type: 
  Country: None (occurrence: None)
  Receive Date: 20100514
  Receipt Date: 20100510
  Transmission Date: 20101027
  Serious: Yes (Hospitalization)
  Sender: FDA-Public Use
  Company Number: BR-ROCHE-696641

PATIENT
  Sex: Male
  Weight: 83 kg

DRUGS (3)
  1. BEVACIZUMAB [Suspect]
     Indication: RENAL CELL CARCINOMA
     Route: 042
     Dates: start: 20091216, end: 20100402
  2. INTERFERON ALFA [Suspect]
     Indication: RENAL CELL CARCINOMA
     Dosage: DOSE: 9 MU, TEMPORARILY HELD.
     Route: 058
     Dates: start: 20091216, end: 20100101
  3. INTERFERON ALFA [Suspect]
     Dosage: DOSE: 6MU
     Route: 058
     Dates: start: 20100118, end: 20100402

REACTIONS (2)
  - GASTROINTESTINAL PERFORATION [None]
  - PERITONITIS [None]
